FAERS Safety Report 25264743 (Version 1)
Quarter: 2025Q2

REPORT INFORMATION
  Report Type: Spontaneous
  Country: US (occurrence: US)
  Receive Date: 20250502
  Receipt Date: 20250502
  Transmission Date: 20250716
  Serious: No
  Sender: SANDOZ
  Company Number: US-002147023-NVSC2025US065552

PATIENT
  Sex: Female

DRUGS (7)
  1. DEXMETHYLPHENIDATE [Suspect]
     Active Substance: DEXMETHYLPHENIDATE
     Indication: Foetal exposure during pregnancy
     Dosage: MATERNAL EXPOSURE DURING PREGNANCY (5 MG, QID (DISP. TABLET))
     Route: 064
  2. KESIMPTA [Suspect]
     Active Substance: OFATUMUMAB
     Dosage: MATERNAL EXPOSURE DURING PREGNANCY (20 MG, QMO)
     Route: 064
     Dates: start: 20231102, end: 20240804
  3. KESIMPTA [Suspect]
     Active Substance: OFATUMUMAB
     Indication: Foetal exposure during pregnancy
     Route: 064
     Dates: start: 20230502
  4. RITALIN [Suspect]
     Active Substance: METHYLPHENIDATE HYDROCHLORIDE
     Indication: Foetal exposure during pregnancy
     Route: 064
  5. IBUPROFEN [Concomitant]
     Active Substance: IBUPROFEN
     Indication: Foetal exposure during pregnancy
     Route: 064
  6. IRON [Concomitant]
     Active Substance: IRON
     Indication: Foetal exposure during pregnancy
     Dosage: MATERNAL EXPOSURE DURING PREGNANCY (28 MG, QD (800 MCG PER TABLET))
     Route: 064
  7. TYLENOL [Concomitant]
     Active Substance: ACETAMINOPHEN
     Indication: Foetal exposure during pregnancy
     Route: 064

REACTIONS (2)
  - Foetal exposure during pregnancy [Unknown]
  - No adverse event [Unknown]
